FAERS Safety Report 11006645 (Version 1)
Quarter: 2015Q2

REPORT INFORMATION
  Report Type: Spontaneous
  Country: US (occurrence: US)
  Receive Date: 20150409
  Receipt Date: 20150409
  Transmission Date: 20150821
  Serious: No
  Sender: FDA-Public Use
  Company Number: US-ALLERGAN-1422690US

PATIENT
  Age: 55 Year

DRUGS (1)
  1. LATISSE [Suspect]
     Active Substance: BIMATOPROST
     Indication: HYPOTRICHOSIS
     Dosage: 1 APPLICATION QD

REACTIONS (2)
  - Blepharal pigmentation [Recovered/Resolved]
  - Iris hyperpigmentation [Recovered/Resolved]
